FAERS Safety Report 6354131-X (Version None)
Quarter: 2009Q3

REPORT INFORMATION
  Report Type: 
  Country: None (occurrence: None)
  Receive Date: 20090914
  Receipt Date: 20090904
  Transmission Date: 20100115
  Serious: Yes (Other)
  Sender: FDA-Public Use
  Company Number: US-BAYER-200925105NA

PATIENT
  Age: 32 Year
  Sex: Female
  Weight: 65 kg

DRUGS (1)
  1. MIRENA [Suspect]
     Indication: CONTRACEPTION
     Dosage: AS USED: 20 ?G
     Route: 015
     Dates: start: 20080312

REACTIONS (3)
  - IUCD COMPLICATION [None]
  - PREGNANCY WITH CONTRACEPTIVE DEVICE [None]
  - UTERINE RUPTURE [None]
